FAERS Safety Report 16472816 (Version 2)
Quarter: 2019Q3

REPORT INFORMATION
  Report Type: Spontaneous
  Country: IT (occurrence: IT)
  Receive Date: 20190625
  Receipt Date: 20190705
  Transmission Date: 20191004
  Serious: Yes (Hospitalization, Other)
  Sender: FDA-Public Use
  Company Number: IT-AUROBINDO-AUR-APL-2019-033338

PATIENT

DRUGS (16)
  1. ARIPIPRAZOLE TABLETS [Suspect]
     Active Substance: ARIPIPRAZOLE
     Indication: PARKINSONISM
  2. TRIHEXYPHENIDYL [Suspect]
     Active Substance: TRIHEXYPHENIDYL
     Indication: MAJOR DEPRESSION
  3. LORAZEPAM. [Concomitant]
     Active Substance: LORAZEPAM
     Dosage: 12 MILLIGRAM, ONCE A DAY,(12 MG, QD )
     Route: 065
  4. ARIPIPRAZOLE TABLETS [Suspect]
     Active Substance: ARIPIPRAZOLE
     Indication: MAJOR DEPRESSION
  5. SERTRALINE [Suspect]
     Active Substance: SERTRALINE HYDROCHLORIDE
     Indication: PRODUCT USED FOR UNKNOWN INDICATION
     Dosage: 25 MILLIGRAM, ONCE A DAY,(25 MG, QD)
     Route: 065
  6. FLUNARIZINE [Suspect]
     Active Substance: FLUNARIZINE
     Indication: PARKINSONISM
     Dosage: 5 MILLIGRAM, ONCE A DAY,(5 MG, QD)
     Route: 065
  7. ARIPIPRAZOLE TABLETS [Suspect]
     Active Substance: ARIPIPRAZOLE
     Indication: PSYCHOTIC SYMPTOM
     Dosage: UNK,INITIAL DOSE UNKNOWN; DOSE INCREASED UPTO 7.5MG PER DAY
     Route: 065
  8. LORAZEPAM. [Concomitant]
     Active Substance: LORAZEPAM
     Indication: HIPPOCAMPAL SCLEROSIS
     Dosage: 1 MILLIGRAM, ONCE A DAY,(UP TO 4 MG/DAY )
     Route: 065
  9. ARIPIPRAZOLE TABLETS [Suspect]
     Active Substance: ARIPIPRAZOLE
     Indication: CATATONIA
     Dosage: DOSE INCREASED UPTO 7.5MG,(7.5 MG, QD)
     Route: 065
  10. TRIHEXYPHENIDYL [Suspect]
     Active Substance: TRIHEXYPHENIDYL
     Indication: DYSTONIA
     Dosage: 10 MILLIGRAM, ONCE A DAY,(10 MG, QD)
     Route: 065
  11. LORAZEPAM. [Concomitant]
     Active Substance: LORAZEPAM
     Dosage: 2 MILLIGRAM, ONCE A DAY,(2 MG, QD )
     Route: 065
  12. LORAZEPAM. [Concomitant]
     Active Substance: LORAZEPAM
     Dosage: 4 MILLIGRAM, ONCE A DAY
     Route: 065
  13. FLUNARIZINE [Suspect]
     Active Substance: FLUNARIZINE
     Indication: DYSTONIA
  14. TRIHEXYPHENIDYL [Suspect]
     Active Substance: TRIHEXYPHENIDYL
     Indication: PARKINSONISM
     Dosage: 6 MILLIGRAM, ONCE A DAY,(6 MG, QD)
     Route: 065
  15. LORAZEPAM. [Concomitant]
     Active Substance: LORAZEPAM
     Dosage: 4.5 MILLIGRAM, ONCE A DAY,(4.5MG, QD )
     Route: 065
  16. CARBAMAZEPINE. [Concomitant]
     Active Substance: CARBAMAZEPINE
     Indication: CLONIC CONVULSION
     Dosage: 200 MILLIGRAM, ONCE A DAY,QD
     Route: 065

REACTIONS (6)
  - Psychiatric symptom [Recovered/Resolved]
  - Condition aggravated [Recovered/Resolved]
  - Catatonia [Recovered/Resolved]
  - Psychotic disorder [Recovered/Resolved]
  - Dystonia [Recovered/Resolved]
  - Hypomania [Recovered/Resolved]
